FAERS Safety Report 13855284 (Version 1)
Quarter: 2017Q3

REPORT INFORMATION
  Report Type: Spontaneous
  Country: US (occurrence: US)
  Receive Date: 20170810
  Receipt Date: 20170810
  Transmission Date: 20171127
  Serious: Yes (Hospitalization, Other)
  Sender: FDA-Public Use
  Company Number: US-JNJFOC-20170806696

PATIENT
  Age: 54 Year
  Sex: Female
  Weight: 122 kg

DRUGS (4)
  1. INVOKANA [Suspect]
     Active Substance: CANAGLIFLOZIN
     Indication: PRODUCT USED FOR UNKNOWN INDICATION
     Route: 048
     Dates: start: 20140707, end: 20140827
  2. TRADJENTA [Suspect]
     Active Substance: LINAGLIPTIN
     Indication: PRODUCT USED FOR UNKNOWN INDICATION
     Route: 048
     Dates: start: 20140707
  3. ACTOS [Suspect]
     Active Substance: PIOGLITAZONE HYDROCHLORIDE
     Indication: PRODUCT USED FOR UNKNOWN INDICATION
     Route: 048
  4. HYDROCHLOROTHIAZIDE W/LISINOPRIL [Suspect]
     Active Substance: HYDROCHLOROTHIAZIDE\LISINOPRIL
     Indication: PRODUCT USED FOR UNKNOWN INDICATION
     Dosage: 25 MG/20 MG
     Route: 048

REACTIONS (7)
  - Fungal infection [Unknown]
  - Diabetic ketoacidosis [Unknown]
  - Upper respiratory tract infection [Unknown]
  - Acidosis [Unknown]
  - Hyponatraemia [Recovering/Resolving]
  - Acute kidney injury [Recovering/Resolving]
  - Hyperosmolar state [Unknown]

NARRATIVE: CASE EVENT DATE: 20140709
